FAERS Safety Report 14667793 (Version 1)
Quarter: 2018Q1

REPORT INFORMATION
  Report Type: Spontaneous
  Country: US (occurrence: US)
  Receive Date: 20180322
  Receipt Date: 20180322
  Transmission Date: 20180509
  Serious: No
  Sender: FDA-Public Use
  Company Number: US-PFIZER INC-2018120469

PATIENT
  Age: 48 Year
  Sex: Female

DRUGS (4)
  1. ATIVAN [Suspect]
     Active Substance: LORAZEPAM
     Dosage: UNK
  2. KLONOPIN [Suspect]
     Active Substance: CLONAZEPAM
     Dosage: UNK
  3. EFFEXOR [Suspect]
     Active Substance: VENLAFAXINE HYDROCHLORIDE
     Dosage: UNK
  4. REGLAN [Suspect]
     Active Substance: METOCLOPRAMIDE HYDROCHLORIDE
     Dosage: UNK

REACTIONS (1)
  - Drug hypersensitivity [Unknown]
